FAERS Safety Report 14384594 (Version 14)
Quarter: 2023Q4

REPORT INFORMATION
  Report Type: Spontaneous
  Country: PL (occurrence: PL)
  Receive Date: 20180115
  Receipt Date: 20231228
  Transmission Date: 20240110
  Serious: Yes (Life-Threatening, Hospitalization, Other)
  Sender: FDA-Public Use
  Company Number: PL-PMCS-06572017

PATIENT
  Age: 85 Year
  Sex: Female

DRUGS (13)
  1. ATORVASTATIN [Interacting]
     Active Substance: ATORVASTATIN
     Indication: Product used for unknown indication
     Dosage: 20 MILLIGRAM, QHS (BEFORE SLEEP)
     Route: 065
  2. SERTRALINE [Interacting]
     Active Substance: SERTRALINE HYDROCHLORIDE
     Indication: Product used for unknown indication
     Dosage: 100 MILLIGRAM, QD (IN THE MORNING)
     Route: 065
  3. DONEPEZIL [Interacting]
     Active Substance: DONEPEZIL
     Indication: Product used for unknown indication
     Dosage: 10 MILLIGRAM, QD (IN THE MORNING)
     Route: 048
  4. QUETIAPINE [Suspect]
     Active Substance: QUETIAPINE
     Indication: Product used for unknown indication
     Dosage: 50 MILLIGRAM, QHS (BEFORE SLEEP)
     Route: 065
  5. MIANSERIN [Interacting]
     Active Substance: MIANSERIN
     Indication: Product used for unknown indication
     Dosage: 30 MILLIGRAM, QHS (BEFORE SLEEP)
     Route: 065
  6. MIANSERIN [Interacting]
     Active Substance: MIANSERIN
     Dosage: 10 MILLIGRAM, QD
     Route: 065
  7. CARVEDILOL [Suspect]
     Active Substance: CARVEDILOL
     Indication: Product used for unknown indication
     Dosage: 6.25 MILLIGRAM, QD (IN THE MORNING)
     Route: 065
  8. CARVEDILOL [Suspect]
     Active Substance: CARVEDILOL
     Dosage: 3.13 MILLIGRAM, QD
     Route: 065
  9. DIETARY SUPPLEMENT\HERBALS\MILK THISTLE [Interacting]
     Active Substance: MILK THISTLE
     Indication: Alanine aminotransferase increased
     Dosage: 140 MILLIGRAM, TID
     Route: 048
  10. DIETARY SUPPLEMENT\HERBALS\MILK THISTLE [Interacting]
     Active Substance: MILK THISTLE
     Dosage: UNK UNK, Q8H
     Route: 065
  11. TORSEMIDE [Interacting]
     Active Substance: TORSEMIDE
     Indication: Product used for unknown indication
     Dosage: 5 MILLIGRAM, QD (IN THE MORNING)
     Route: 065
  12. DIETARY SUPPLEMENT\HERBALS\MILK THISTLE [Interacting]
     Active Substance: MILK THISTLE
     Indication: Alanine aminotransferase increased
     Dosage: 140 MILLIGRAM, TID
     Route: 048
  13. ZOFENOPRIL [Concomitant]
     Active Substance: ZOFENOPRIL
     Indication: Product used for unknown indication
     Dosage: 7.5 MILLIGRAM, QD (MORNING)
     Route: 065

REACTIONS (22)
  - Hypokalaemia [Recovered/Resolved]
  - Liver function test increased [Recovered/Resolved]
  - Abdominal pain [Recovered/Resolved]
  - Muscle contracture [Recovered/Resolved]
  - Dry mouth [Recovered/Resolved]
  - Hepatic pain [Recovered/Resolved]
  - Hepatitis [Recovered/Resolved]
  - Sedation complication [Recovered/Resolved]
  - Loss of consciousness [Recovered/Resolved]
  - Abdominal pain upper [Recovered/Resolved]
  - Herbal interaction [Unknown]
  - Bradycardia [Recovering/Resolving]
  - Nausea [Recovering/Resolving]
  - Diarrhoea [Recovering/Resolving]
  - Liver disorder [Recovering/Resolving]
  - Muscle spasms [Recovering/Resolving]
  - Somnolence [Recovering/Resolving]
  - Syncope [Recovering/Resolving]
  - Alanine aminotransferase increased [Recovering/Resolving]
  - Musculoskeletal chest pain [Recovering/Resolving]
  - Hyperhidrosis [Recovering/Resolving]
  - Drug interaction [Unknown]
